FAERS Safety Report 9401847 (Version 1)
Quarter: 2013Q3

REPORT INFORMATION
  Report Type: Spontaneous
  Country: ZA (occurrence: ZA)
  Receive Date: 20130716
  Receipt Date: 20130716
  Transmission Date: 20140515
  Serious: Yes (Hospitalization, Other)
  Sender: FDA-Public Use
  Company Number: ZA-JNJFOC-20130702310

PATIENT
  Sex: Female
  Weight: 70 kg

DRUGS (3)
  1. REVELLEX [Suspect]
     Indication: RHEUMATOID ARTHRITIS
     Route: 042
     Dates: start: 20130523
  2. REVELLEX [Suspect]
     Indication: RHEUMATOID ARTHRITIS
     Route: 042
     Dates: start: 20090820
  3. MORPHINE [Suspect]
     Indication: FIBROMYALGIA
     Route: 048

REACTIONS (4)
  - Constipation [Recovered/Resolved]
  - Faecaloma [Recovered/Resolved]
  - Cholecystitis infective [Not Recovered/Not Resolved]
  - Upper respiratory tract infection [Not Recovered/Not Resolved]
